FAERS Safety Report 8544173-8 (Version None)
Quarter: 2012Q3

REPORT INFORMATION
  Report Type: 
  Country: None (occurrence: None)
  Receive Date: 20120719
  Receipt Date: 20120719
  Transmission Date: 20120928
  Serious: Yes (Other)
  Sender: FDA-Public Use
  Company Number: None

PATIENT
  Age: 38 Year
  Sex: Female
  Weight: 59.4212 kg

DRUGS (4)
  1. DROSPIRENONE AND ETHINYL ESTRADIOL [Suspect]
     Indication: CONTRACEPTION
     Dosage: ONE DAILY PO
     Route: 048
     Dates: start: 20080720, end: 20081220
  2. DROSPIRENONE AND ETHINYL ESTRADIOL [Suspect]
     Indication: POLYCYSTIC OVARIES
     Dosage: ONE DAILY PO
     Route: 048
     Dates: start: 20080720, end: 20081220
  3. YAZ [Suspect]
     Indication: POLYCYSTIC OVARIES
     Dosage: ONE DAILY PO
     Route: 048
     Dates: start: 20120707, end: 20120718
  4. YAZ [Suspect]
     Indication: CONTRACEPTION
     Dosage: ONE DAILY PO
     Route: 048
     Dates: start: 20120707, end: 20120718

REACTIONS (4)
  - PRODUCT QUALITY ISSUE [None]
  - AFFECTIVE DISORDER [None]
  - ANGER [None]
  - THINKING ABNORMAL [None]
